FAERS Safety Report 7288322-0 (Version None)
Quarter: 2011Q1

REPORT INFORMATION
  Report Type: 
  Country: None (occurrence: None)
  Receive Date: 20110211
  Receipt Date: 20110210
  Transmission Date: 20110831
  Serious: Yes (Other)
  Sender: FDA-Public Use
  Company Number: US-PFIZER INC-2011030321

PATIENT
  Sex: Female
  Weight: 113.38 kg

DRUGS (5)
  1. CHANTIX [Suspect]
     Indication: SMOKING CESSATION THERAPY
     Dosage: UNK
     Route: 048
     Dates: start: 20100101
  2. CHANTIX [Suspect]
     Dosage: 1 MG, 2X/DAY
     Route: 048
     Dates: start: 20101201
  3. METFORMIN [Concomitant]
     Dosage: 500 MG, 2X/DAY
     Route: 048
  4. RAMIPRIL [Concomitant]
     Dosage: 5 MG, 1X/DAY
     Route: 048
  5. SYNTHROID [Concomitant]
     Dosage: 200 UG, 1X/DAY
     Route: 048

REACTIONS (3)
  - SKIN EXFOLIATION [None]
  - LOWER EXTREMITY MASS [None]
  - ERYTHEMA [None]
